FAERS Safety Report 9626221 (Version 2)
Quarter: 2013Q4

REPORT INFORMATION
  Report Type: Spontaneous
  Country: US (occurrence: US)
  Receive Date: 20131016
  Receipt Date: 20131125
  Transmission Date: 20140711
  Serious: Yes (Hospitalization)
  Sender: FDA-Public Use
  Company Number: US-NOVOPROD-389661

PATIENT
  Age: 50 Year
  Sex: Male
  Weight: 162.81 kg

DRUGS (1)
  1. VICTOZA [Suspect]
     Indication: TYPE 2 DIABETES MELLITUS
     Dosage: 1.8 MG, DAILY
     Route: 058
     Dates: start: 2012

REACTIONS (3)
  - Injection site abscess [Recovered/Resolved]
  - Mycobacterium fortuitum infection [Recovered/Resolved]
  - Mycobacterium abscessus infection [Recovered/Resolved]
